FAERS Safety Report 11247058 (Version 2)
Quarter: 2015Q3

REPORT INFORMATION
  Report Type: Spontaneous
  Country: SK (occurrence: SK)
  Receive Date: 20150708
  Receipt Date: 20150729
  Transmission Date: 20151125
  Serious: Yes (Hospitalization)
  Sender: FDA-Public Use
  Company Number: SK-SA-2015SA096791

PATIENT
  Age: 49 Year
  Sex: Female
  Weight: 50 kg

DRUGS (5)
  1. SOLU-MEDROL [Concomitant]
     Active Substance: METHYLPREDNISOLONE SODIUM SUCCINATE
     Indication: PREMEDICATION
     Dates: start: 201506, end: 201506
  2. LORATADINE. [Concomitant]
     Active Substance: LORATADINE
     Indication: PREMEDICATION
     Dates: start: 201506, end: 201506
  3. SOLU-MEDROL [Concomitant]
     Active Substance: METHYLPREDNISOLONE SODIUM SUCCINATE
     Indication: PREMEDICATION
     Dates: start: 201506, end: 201506
  4. LEMTRADA [Suspect]
     Active Substance: ALEMTUZUMAB
     Indication: MULTIPLE SCLEROSIS
     Route: 041
     Dates: start: 20150624, end: 20150628
  5. PARALEN [Concomitant]
     Active Substance: ACETAMINOPHEN
     Indication: PREMEDICATION
     Dates: start: 201506, end: 201506

REACTIONS (1)
  - Cutaneous vasculitis [Recovered/Resolved]

NARRATIVE: CASE EVENT DATE: 201506
